FAERS Safety Report 10698549 (Version 1)
Quarter: 2014Q4

REPORT INFORMATION
  Report Type: Spontaneous
  Country: US (occurrence: None)
  Receive Date: 20141223
  Receipt Date: 20141223
  Transmission Date: 20150529
  Serious: No
  Sender: FDA-Public Use
  Company Number: 1000071139

PATIENT
  Age: 87 Year
  Sex: Female

DRUGS (3)
  1. BLOOD PRESSURE MEDICATION NOS (BLOOD PRESSURE MEDICATION NOS) [Concomitant]
  2. CHOLESTEROL MEDICATION NOS (CHOLESTEROL MEDICATION NOS) [Concomitant]
  3. LINZESS [Suspect]
     Active Substance: LINACLOTIDE
     Indication: CONSTIPATION
     Route: 048
     Dates: start: 201407

REACTIONS (3)
  - Nausea [None]
  - Malaise [None]
  - Intentional product misuse [None]

NARRATIVE: CASE EVENT DATE: 201407
